FAERS Safety Report 10183971 (Version 1)
Quarter: 2014Q2

REPORT INFORMATION
  Report Type: Spontaneous
  Country: US (occurrence: US)
  Receive Date: 20140520
  Receipt Date: 20140520
  Transmission Date: 20141212
  Serious: Yes (Life-Threatening, Hospitalization, Disabling, Other)
  Sender: FDA-Public Use
  Company Number: US-GLAXOSMITHKLINE-A1073457A

PATIENT
  Sex: 0

DRUGS (2)
  1. VOTRIENT [Suspect]
     Indication: RENAL CELL CARCINOMA
     Route: 048
  2. UNKNOWN [Concomitant]

REACTIONS (2)
  - Duodenal perforation [Not Recovered/Not Resolved]
  - Terminal state [Not Recovered/Not Resolved]
